FAERS Safety Report 6134629-X (Version None)
Quarter: 2009Q1

REPORT INFORMATION
  Report Type: 
  Country: None (occurrence: None)
  Receive Date: 20090327
  Receipt Date: 20090319
  Transmission Date: 20090719
  Serious: Yes (Other)
  Sender: FDA-Public Use
  Company Number: PHHY2009AT10349

PATIENT
  Sex: Female

DRUGS (1)
  1. ACLASTA [Suspect]

REACTIONS (6)
  - CARDIOVASCULAR INSUFFICIENCY [None]
  - DIARRHOEA [None]
  - FALL [None]
  - JAW FRACTURE [None]
  - SPINAL FRACTURE [None]
  - VOMITING [None]
